FAERS Safety Report 12474156 (Version 2)
Quarter: 2016Q2

REPORT INFORMATION
  Report Type: Report from Study
  Country: PL (occurrence: PL)
  Receive Date: 20160616
  Receipt Date: 20160629
  Transmission Date: 20160815
  Serious: Yes (Life-Threatening, Hospitalization)
  Sender: FDA-Public Use
  Company Number: PL-ASTRAZENECA-2016SE37028

PATIENT
  Age: 22293 Day
  Sex: Male
  Weight: 97 kg

DRUGS (4)
  1. ATORVASTATYNA [Concomitant]
     Indication: HYPERLIPIDAEMIA
     Route: 048
     Dates: start: 2010, end: 20160309
  2. NEBILENIN [Concomitant]
     Indication: HYPERTENSION
     Route: 048
     Dates: start: 2010
  3. AZD6140 [Suspect]
     Active Substance: TICAGRELOR
     Indication: PERIPHERAL ARTERIAL OCCLUSIVE DISEASE
     Route: 048
     Dates: start: 20140108, end: 20160309
  4. FUROSEMID [Concomitant]
     Active Substance: FUROSEMIDE
     Indication: HYPERTENSION
     Route: 048
     Dates: start: 2010

REACTIONS (2)
  - Anaemia [Recovered/Resolved]
  - Colon cancer [Recovered/Resolved]

NARRATIVE: CASE EVENT DATE: 20160302
